FAERS Safety Report 7356545-8 (Version None)
Quarter: 2011Q1

REPORT INFORMATION
  Report Type: 
  Country: None (occurrence: None)
  Receive Date: 20110316
  Receipt Date: 20110302
  Transmission Date: 20110831
  Serious: Yes (Other)
  Sender: FDA-Public Use
  Company Number: PHHY2011CO18041

PATIENT
  Sex: Female

DRUGS (3)
  1. ACLASTA [Suspect]
     Indication: OSTEOPOROSIS
     Dosage: 5 MG/100 ML
     Dates: start: 20080501
  2. ACLASTA [Suspect]
     Dosage: 5 MG/100 ML
  3. ACLASTA [Suspect]
     Dosage: 5 MG/100 ML

REACTIONS (3)
  - TOOTH ABSCESS [None]
  - PAIN [None]
  - TOOTH FRACTURE [None]
